FAERS Safety Report 5453463-7 (Version None)
Quarter: 2007Q3

REPORT INFORMATION
  Report Type: 
  Country: None (occurrence: None)
  Receive Date: 20070913
  Receipt Date: 20070905
  Transmission Date: 20080115
  Serious: Yes (Hospitalization)
  Sender: FDA-Public Use
  Company Number: 2007BI016851

PATIENT
  Age: 45 Year
  Sex: Male
  Weight: 79.3795 kg

DRUGS (3)
  1. NATALIZUMAB [Suspect]
     Indication: DRUG USE FOR UNKNOWN INDICATION
     Dosage: 300 MG QM IV
     Route: 042
     Dates: start: 20070409
  2. ULTRAM [Concomitant]
  3. PROVIGIL [Concomitant]

REACTIONS (7)
  - ANXIETY [None]
  - CAROTID ARTERIOSCLEROSIS [None]
  - HERPES ZOSTER [None]
  - NAUSEA [None]
  - PRESYNCOPE [None]
  - RASH [None]
  - TRICUSPID VALVE INCOMPETENCE [None]
